FAERS Safety Report 5313505-6 (Version None)
Quarter: 2007Q2

REPORT INFORMATION
  Report Type: 
  Country: None (occurrence: None)
  Receive Date: 20070424
  Receipt Date: 20070410
  Transmission Date: 20071010
  Serious: Yes (Hospitalization)
  Sender: FDA-Public Use
  Company Number: VNL_0516_2007

PATIENT
  Age: 67 Year
  Sex: Female

DRUGS (7)
  1. APO-GO [Suspect]
     Indication: PARKINSON'S DISEASE
     Dosage: 1 MG/HR CON SC
     Route: 058
     Dates: start: 20070220, end: 20070221
  2. SINEMET [Concomitant]
  3. AMANTADINE HCL [Concomitant]
  4. DOMPERIDONE [Concomitant]
  5. QUETIAPINE FUMARATE [Concomitant]
  6. CO-AMILOFRUSE [Concomitant]
  7. DOCUSATE SODIUM [Concomitant]

REACTIONS (1)
  - PSYCHOTIC DISORDER [None]
